FAERS Safety Report 11148392 (Version 1)
Quarter: 2015Q2

REPORT INFORMATION
  Report Type: Spontaneous
  Country: US (occurrence: None)
  Receive Date: 20150528
  Receipt Date: 20150528
  Transmission Date: 20150821
  Serious: Yes (Life-Threatening, Hospitalization)
  Sender: FDA-Public Use
  Company Number: None

PATIENT
  Age: 71 Year
  Sex: Female
  Weight: 80.4 kg

DRUGS (1)
  1. DABIGATRAN 150 MG BOEHRINGER [Suspect]
     Active Substance: DABIGATRAN
     Indication: ATRIAL FIBRILLATION
     Route: 048
     Dates: start: 20150210, end: 20150325

REACTIONS (7)
  - Thrombophlebitis superficial [None]
  - Pneumothorax [None]
  - Rib fracture [None]
  - Oxygen saturation decreased [None]
  - Dyspnoea [None]
  - Fluid overload [None]
  - Cardiac failure congestive [None]

NARRATIVE: CASE EVENT DATE: 20150410
